FAERS Safety Report 25188656 (Version 2)
Quarter: 2025Q2

REPORT INFORMATION
  Report Type: Spontaneous
  Country: US (occurrence: US)
  Receive Date: 20250411
  Receipt Date: 20250424
  Transmission Date: 20250717
  Serious: Yes (Other)
  Sender: CHIESI
  Company Number: US-CHIESI-2025CHF00639

PATIENT
  Age: 4 Year
  Sex: Male

DRUGS (2)
  1. REVCOVI [Suspect]
     Active Substance: ELAPEGADEMASE-LVLR
     Indication: Combined immunodeficiency
     Dosage: 2.4 MILLIGRAM, QW
     Route: 030
     Dates: start: 20210804
  2. LIDOCAINE\PRILOCAINE [Concomitant]
     Active Substance: LIDOCAINE\PRILOCAINE
     Indication: Product used for unknown indication

REACTIONS (3)
  - Growth retardation [Not Recovered/Not Resolved]
  - Hypophagia [Not Recovered/Not Resolved]
  - Viral infection [Recovered/Resolved]

NARRATIVE: CASE EVENT DATE: 20210801
